FAERS Safety Report 5649833-4 (Version None)
Quarter: 2008Q1

REPORT INFORMATION
  Report Type: 
  Country: None (occurrence: None)
  Receive Date: 20080303
  Receipt Date: 20080206
  Transmission Date: 20080703
  Serious: Yes (Hospitalization)
  Sender: FDA-Public Use
  Company Number: T08-USA-00214-01

PATIENT
  Age: 22 Year
  Sex: Female
  Weight: 98.4 kg

DRUGS (14)
  1. CERVIDIL [Suspect]
     Indication: LABOUR INDUCTION
     Dosage: 10 MG ONCE TRANSPLACENTAL
     Route: 064
     Dates: start: 20060820, end: 20060821
  2. BENADRYL [Concomitant]
  3. MICONAZOLE [Concomitant]
  4. MAGNESIUM SULFATE [Concomitant]
  5. ACETAMINOPHEN [Concomitant]
  6. AMBIEN [Concomitant]
  7. SCOPALAMINE [Concomitant]
  8. AMPICILLIN [Concomitant]
  9. GENTAMICIN [Concomitant]
  10. FERROUS SULFATE TAB [Concomitant]
  11. IRON SUCROSE [Concomitant]
  12. CLINDAMYCIN HCL [Concomitant]
  13. HEMABATE (CARBOPROST THOMETAMOL) [Concomitant]
  14. OXYTOCIN [Concomitant]

REACTIONS (3)
  - ARRESTED LABOUR [None]
  - CAESAREAN SECTION [None]
  - DRUG EXPOSURE DURING PREGNANCY [None]
